FAERS Safety Report 19452113 (Version 1)
Quarter: 2021Q2

REPORT INFORMATION
  Report Type: Spontaneous
  Country: US (occurrence: US)
  Receive Date: 20210622
  Receipt Date: 20210622
  Transmission Date: 20210717
  Serious: Yes (Other)
  Sender: FDA-Public Use
  Company Number: None

PATIENT
  Age: 84 Year
  Sex: Female
  Weight: 72.58 kg

DRUGS (14)
  1. ROPINIROLE 0.25MG TABLETS [Suspect]
     Active Substance: ROPINIROLE
     Indication: RESTLESS LEGS SYNDROME
     Dosage: ?          QUANTITY:2 DF DOSAGE FORM;?
     Route: 048
  2. AREDS 2 W/VITAMINS [Concomitant]
  3. BIOTIN [Concomitant]
     Active Substance: BIOTIN
  4. BACLOFEN. [Concomitant]
     Active Substance: BACLOFEN
  5. BUPROPXL [Concomitant]
  6. TUMS [Concomitant]
     Active Substance: CALCIUM CARBONATE
  7. FIBER [Concomitant]
     Active Substance: PSYLLIUM HUSK
  8. ROSUVASTATIN. [Concomitant]
     Active Substance: ROSUVASTATIN
  9. VD3 [Concomitant]
  10. BABY ASPIRIN [Concomitant]
     Active Substance: ASPIRIN
  11. ACETAMINOPHEN. [Concomitant]
     Active Substance: ACETAMINOPHEN
  12. FISH OIL [Concomitant]
     Active Substance: FISH OIL
  13. VC [Concomitant]
     Active Substance: ASCORBIC ACID
  14. METROPROLOL [Concomitant]
     Active Substance: METOPROLOL

REACTIONS (5)
  - Dyspnoea [None]
  - Nasal obstruction [None]
  - Pulmonary congestion [None]
  - Dyskinesia [None]
  - Yawning [None]
